FAERS Safety Report 20415741 (Version 1)
Quarter: 2022Q1

REPORT INFORMATION
  Report Type: Spontaneous
  Country: FR (occurrence: FR)
  Receive Date: 20220202
  Receipt Date: 20220202
  Transmission Date: 20220423
  Serious: Yes (Other)
  Sender: FDA-Public Use
  Company Number: FR-BAYER-2022A013219

PATIENT
  Age: 67 Year
  Sex: Male

DRUGS (1)
  1. STIVARGA [Suspect]
     Active Substance: REGORAFENIB
     Indication: Hepatocellular carcinoma
     Dosage: UNK
     Dates: start: 202109

REACTIONS (4)
  - Peripheral ischaemia [None]
  - Arteriosclerosis [None]
  - Type 2 diabetes mellitus [None]
  - Congestive cardiomyopathy [None]

NARRATIVE: CASE EVENT DATE: 20211201
